FAERS Safety Report 10202849 (Version 1)
Quarter: 2014Q2

REPORT INFORMATION
  Report Type: Spontaneous
  Country: US (occurrence: US)
  Receive Date: 20140522
  Receipt Date: 20140522
  Transmission Date: 20141212
  Serious: No
  Sender: FDA-Public Use
  Company Number: US-SA-2014SA038898

PATIENT
  Age: 46 Year
  Sex: Female
  Weight: 54.8 kg

DRUGS (7)
  1. LANTUS SOLOSTAR [Suspect]
     Indication: TYPE 1 DIABETES MELLITUS
     Dosage: STARTED 4 YEARS AGO DOSE:11 UNIT(S)
     Route: 058
     Dates: start: 200805
  2. LEVOTHYROXINE [Concomitant]
     Indication: HYPOTHYROIDISM
     Dates: start: 1980
  3. PRAVASTATIN [Concomitant]
     Indication: PROPHYLAXIS
     Dates: start: 2009
  4. SERTRALINE [Concomitant]
     Indication: ANXIETY
     Dates: start: 2008
  5. LEVETIRACETAM [Concomitant]
     Indication: CONVULSION
     Dates: start: 2013
  6. MULTIVITAMINS [Concomitant]
     Indication: NUTRITIONAL SUPPLEMENTATION
  7. SOLOSTAR [Concomitant]
     Dates: start: 200805

REACTIONS (2)
  - Cystitis [Unknown]
  - Blood glucose increased [Recovered/Resolved]
